FAERS Safety Report 9341301 (Version 1)
Quarter: 2013Q2

REPORT INFORMATION
  Report Type: Spontaneous
  Country: US (occurrence: None)
  Receive Date: 20130610
  Receipt Date: 20130610
  Transmission Date: 20140414
  Serious: Yes (Other)
  Sender: FDA-Public Use
  Company Number: None

PATIENT
  Age: 77 Year
  Sex: Male
  Weight: 149.69 kg

DRUGS (1)
  1. COMBIVENT [Suspect]
     Indication: OXYGEN SUPPLEMENTATION
     Dosage: 2 PUFFS
     Route: 048
     Dates: start: 20130417, end: 20130417

REACTIONS (5)
  - Oral discomfort [None]
  - Stomatitis [None]
  - Aphthous stomatitis [None]
  - Glossodynia [None]
  - Pneumonia [None]
